FAERS Safety Report 8499484-1 (Version None)
Quarter: 2012Q3

REPORT INFORMATION
  Report Type: 
  Country: None (occurrence: None)
  Receive Date: 20120710
  Receipt Date: 20120702
  Transmission Date: 20120928
  Serious: Yes (Hospitalization)
  Sender: FDA-Public Use
  Company Number: BD-JNJFOC-20120701352

PATIENT
  Age: 9 Year
  Sex: Female

DRUGS (1)
  1. MEBENDAZOLE [Suspect]
     Indication: HELMINTHIC INFECTION
     Route: 065
     Dates: start: 20120522

REACTIONS (5)
  - MUSCULAR WEAKNESS [None]
  - DIZZINESS [None]
  - ABDOMINAL PAIN [None]
  - PAIN IN EXTREMITY [None]
  - NAUSEA [None]
